FAERS Safety Report 8951113 (Version 3)
Quarter: 2013Q2

REPORT INFORMATION
  Report Type: Spontaneous
  Country: TW (occurrence: TW)
  Receive Date: 20121207
  Receipt Date: 20130417
  Transmission Date: 20140414
  Serious: Yes (Other)
  Sender: FDA-Public Use
  Company Number: TW-ABBOTT-12P-153-1015582-00

PATIENT
  Age: 76 Year
  Sex: Male
  Weight: 50 kg

DRUGS (2)
  1. HUMIRA [Suspect]
     Indication: RHEUMATOID ARTHRITIS
     Route: 058
     Dates: start: 20110907, end: 20121031
  2. HUMIRA [Suspect]
     Route: 058
     Dates: start: 20130320

REACTIONS (2)
  - Squamous cell carcinoma of the oral cavity [Not Recovered/Not Resolved]
  - Arthralgia [Unknown]
